FAERS Safety Report 25155857 (Version 1)
Quarter: 2025Q2

REPORT INFORMATION
  Report Type: Spontaneous
  Country: US (occurrence: US)
  Receive Date: 20250403
  Receipt Date: 20250403
  Transmission Date: 20250717
  Serious: Yes (Life-Threatening, Hospitalization, Other)
  Sender: PFIZER
  Company Number: US-PFIZER INC-PV202500038750

PATIENT
  Age: 83 Year
  Sex: Male

DRUGS (1)
  1. VORICONAZOLE [Suspect]
     Active Substance: VORICONAZOLE
     Indication: Scedosporium infection

REACTIONS (4)
  - Hepatotoxicity [Unknown]
  - Neurotoxicity [Unknown]
  - Transverse sinus thrombosis [Unknown]
  - Sigmoid sinus thrombosis [Unknown]
